FAERS Safety Report 9160810 (Version 1)
Quarter: 2013Q1

REPORT INFORMATION
  Report Type: Spontaneous
  Country: IT (occurrence: IT)
  Receive Date: 20130313
  Receipt Date: 20130313
  Transmission Date: 20140127
  Serious: Yes (Other)
  Sender: FDA-Public Use
  Company Number: IT-ASTRAZENECA-2013SE15041

PATIENT
  Age: 20708 Day
  Sex: Female

DRUGS (3)
  1. LUCEN [Suspect]
     Route: 048
     Dates: start: 20121215, end: 20121215
  2. CLARITHROMYCIN [Suspect]
     Route: 065
     Dates: start: 20121215, end: 20121215
  3. AMOXICILLIN [Suspect]
     Route: 065
     Dates: start: 20121215, end: 20121215

REACTIONS (2)
  - Self injurious behaviour [Unknown]
  - Tremor [Recovering/Resolving]
